FAERS Safety Report 8244923-4 (Version None)
Quarter: 2012Q1

REPORT INFORMATION
  Report Type: 
  Country: None (occurrence: None)
  Receive Date: 20120329
  Receipt Date: 20110915
  Transmission Date: 20120608
  Serious: No
  Sender: FDA-Public Use
  Company Number: US-MYLANLABS-2011S1019303

PATIENT
  Age: 37 Year
  Sex: Male
  Weight: 95.26 kg

DRUGS (6)
  1. OXYCODONE HCL AND ACETAMINOPHEN [Concomitant]
     Indication: BREAKTHROUGH PAIN
  2. ZOCOR [Concomitant]
     Dosage: STARTED APPROXIMATELY 18 MONTHS AGO
     Dates: start: 20100101
  3. ALPRAZOLAM [Concomitant]
     Dosage: STARTED APPROXIMATELY 6 MONTHS AGO
     Dates: start: 20110101
  4. AMITRIPTYLINE HCL [Concomitant]
  5. LOPRESSOR [Concomitant]
  6. FENTANYL-100 [Suspect]
     Indication: BACK PAIN
     Dosage: Q48 HOURS
     Route: 062
     Dates: start: 20070101

REACTIONS (1)
  - DRUG SCREEN FALSE POSITIVE [None]
